FAERS Safety Report 8975308 (Version 2)
Quarter: 2012Q4

REPORT INFORMATION
  Report Type: 
  Country: US (occurrence: US)
  Receive Date: 20121219
  Receipt Date: 20121228
  Transmission Date: 20130627
  Serious: Yes (Death, Hospitalization)
  Sender: FDA-Public Use
  Company Number: US-B.I. PHARMACEUTICALS,INC./RIDGEFIELD-2012-BI-03154BP

PATIENT
  Age: 62 Year
  Sex: Female
  Weight: 73.03 kg

DRUGS (3)
  1. SPIRIVA [Suspect]
     Indication: CHRONIC OBSTRUCTIVE PULMONARY DISEASE
     Route: 055
     Dates: end: 20121127
  2. TRIAMTERENE HCTZ [Concomitant]
  3. PREMARIN [Concomitant]

REACTIONS (1)
  - Cerebrovascular accident [Fatal]
